FAERS Safety Report 17713761 (Version 1)
Quarter: 2020Q2

REPORT INFORMATION
  Report Type: Spontaneous
  Country: US (occurrence: US)
  Receive Date: 20200427
  Receipt Date: 20200427
  Transmission Date: 20200714
  Serious: No
  Sender: FDA-Public Use
  Company Number: None

PATIENT
  Age: 51 Year
  Sex: Female

DRUGS (2)
  1. GABAPENTIN. [Suspect]
     Active Substance: GABAPENTIN
  2. REPATHA [Suspect]
     Active Substance: EVOLOCUMAB

REACTIONS (2)
  - Product use issue [None]
  - Dizziness [None]

NARRATIVE: CASE EVENT DATE: 20200427
